FAERS Safety Report 6167423-4 (Version None)
Quarter: 2009Q2

REPORT INFORMATION
  Report Type: 
  Country: None (occurrence: None)
  Receive Date: 20090424
  Receipt Date: 20090415
  Transmission Date: 20091009
  Serious: Yes (Hospitalization, Other)
  Sender: FDA-Public Use
  Company Number: PHBS2005JP18166

PATIENT
  Age: 3 Year
  Sex: Male

DRUGS (26)
  1. NEORAL [Suspect]
     Indication: HEART TRANSPLANT
     Dosage: 69 MG/D
     Route: 048
     Dates: start: 20030526, end: 20030806
  2. NEORAL [Suspect]
     Dosage: 75 MG/D
     Route: 048
     Dates: start: 20030806, end: 20031104
  3. NEORAL [Suspect]
     Dosage: 69 MG/D
     Route: 048
     Dates: start: 20031104, end: 20040121
  4. NEORAL [Suspect]
     Dosage: 63 MG/D
     Route: 048
     Dates: start: 20040121, end: 20040621
  5. NEORAL [Suspect]
     Dosage: 60 MG/D
     Route: 048
     Dates: start: 20040721, end: 20040830
  6. NEORAL [Suspect]
     Dosage: 57 MG/D
     Route: 048
     Dates: start: 20040830, end: 20040906
  7. NEORAL [Suspect]
     Dosage: 60 MG/D
     Route: 048
     Dates: start: 20040906, end: 20061018
  8. NEORAL [Suspect]
     Dosage: 54 MG/D
     Route: 048
     Dates: start: 20041018, end: 20041021
  9. NEORAL [Suspect]
     Dosage: 57 MG/D
     Route: 048
     Dates: start: 20041021, end: 20041102
  10. NEORAL [Suspect]
     Dosage: 48 MG/D
     Route: 048
     Dates: start: 20041102, end: 20041104
  11. NEORAL [Suspect]
     Dosage: 42 MG/D
     Route: 048
     Dates: start: 20041104, end: 20041109
  12. NEORAL [Suspect]
     Dosage: 36 MG/D
     Route: 048
     Dates: start: 20041109, end: 20041111
  13. NEORAL [Suspect]
     Dosage: 30 MG/D
     Route: 048
     Dates: start: 20041111, end: 20041115
  14. NEORAL [Suspect]
     Dosage: 33 MG/D
     Route: 048
     Dates: start: 20041115, end: 20041124
  15. NEORAL [Suspect]
     Dosage: 31.5 MG/D
     Route: 048
     Dates: start: 20041124, end: 20050104
  16. NEORAL [Suspect]
     Dosage: 30 MG/D
     Route: 048
     Dates: start: 20050104, end: 20050107
  17. NEORAL [Suspect]
     Dosage: 27 MG/D
     Route: 048
     Dates: start: 20050107, end: 20050113
  18. NEORAL [Suspect]
     Dosage: 28.5 MG/D
     Route: 048
     Dates: start: 20050113
  19. IMURAN [Suspect]
     Indication: HEART TRANSPLANT
     Dosage: 6 MG/D
     Route: 048
     Dates: start: 20030526, end: 20030526
  20. IMURAN [Suspect]
     Dosage: 4 MG/D
     Route: 048
     Dates: start: 20030626, end: 20030704
  21. IMURAN [Suspect]
     Dosage: 3 MG/D
     Route: 048
     Dates: start: 20030704, end: 20030711
  22. IMURAN [Suspect]
     Dosage: 3 MG/D
     Route: 048
     Dates: start: 20030821, end: 20030903
  23. CELLCEPT [Suspect]
     Indication: HEART TRANSPLANT
     Dosage: 50 MG/D
     Route: 048
     Dates: start: 20031126, end: 20040317
  24. CELLCEPT [Suspect]
     Dosage: 100 MG/D
     Route: 048
     Dates: start: 20040317, end: 20041018
  25. CELLCEPT [Suspect]
     Dosage: 50 MG/D
     Route: 048
     Dates: start: 20041018, end: 20041021
  26. CELLCEPT [Suspect]
     Dosage: 50 MG/D
     Route: 048
     Dates: start: 20041115, end: 20041124

REACTIONS (17)
  - ABDOMINAL DISCOMFORT [None]
  - ABDOMINAL MASS [None]
  - ABDOMINAL NEOPLASM [None]
  - ABDOMINAL PAIN [None]
  - ASCITES [None]
  - BLOOD LACTATE DEHYDROGENASE INCREASED [None]
  - BONE MARROW FAILURE [None]
  - BURKITT'S LYMPHOMA [None]
  - C-REACTIVE PROTEIN INCREASED [None]
  - CYTOMEGALOVIRUS INFECTION [None]
  - DIFFUSE LARGE B-CELL LYMPHOMA [None]
  - EPSTEIN-BARR VIRUS INFECTION [None]
  - LEUKOPENIA [None]
  - MALAISE [None]
  - MOROSE [None]
  - TONSILLITIS [None]
  - WHITE BLOOD CELL COUNT INCREASED [None]
